FAERS Safety Report 15144638 (Version 4)
Quarter: 2018Q3

REPORT INFORMATION
  Report Type: Spontaneous
  Country: US (occurrence: US)
  Receive Date: 20180713
  Receipt Date: 20180727
  Transmission Date: 20181010
  Serious: Yes (Other)
  Sender: FDA-Public Use
  Company Number: US-CELGENEUS-USA-20180702389

PATIENT
  Sex: Female
  Weight: 117.13 kg

DRUGS (2)
  1. REVLIMID [Suspect]
     Active Substance: LENALIDOMIDE
     Dosage: 7.5 MILLIGRAM
     Route: 048
     Dates: start: 201801
  2. REVLIMID [Suspect]
     Active Substance: LENALIDOMIDE
     Indication: 5Q MINUS SYNDROME
     Dosage: 10 MILLIGRAM
     Route: 048
     Dates: start: 201708

REACTIONS (6)
  - Sinus disorder [Unknown]
  - Hereditary angioedema [Unknown]
  - Cough [Unknown]
  - Neuropathy peripheral [Unknown]
  - Dizziness [Unknown]
  - Hypersensitivity [Unknown]
